FAERS Safety Report 10571283 (Version 1)
Quarter: 2014Q4

REPORT INFORMATION
  Report Type: Spontaneous
  Country: US (occurrence: US)
  Receive Date: 20141107
  Receipt Date: 20141107
  Transmission Date: 20150529
  Serious: No
  Sender: FDA-Public Use
  Company Number: US-ELI_LILLY_AND_COMPANY-US201411000658

PATIENT
  Sex: Female

DRUGS (1)
  1. EVISTA [Suspect]
     Active Substance: RALOXIFENE HYDROCHLORIDE
     Indication: BREAST HYPERPLASIA
     Dosage: UNK, UNKNOWN
     Route: 065

REACTIONS (3)
  - Leiomyoma [Unknown]
  - Off label use [Unknown]
  - Ultrasound ovary abnormal [Unknown]
